FAERS Safety Report 9209531 (Version 1)
Quarter: 2013Q2

REPORT INFORMATION
  Report Type: Spontaneous
  Country: US (occurrence: None)
  Receive Date: 20130403
  Receipt Date: 20130403
  Transmission Date: 20140414
  Serious: Yes (Life-Threatening, Disabling, Other)
  Sender: FDA-Public Use
  Company Number: None

PATIENT
  Age: 36 Year
  Sex: Female
  Weight: 62.6 kg

DRUGS (1)
  1. CYMBALTA [Suspect]
     Indication: FIBROMYALGIA
     Dosage: ON IT FOR ABOUT 8 YRS
     Route: 048
     Dates: start: 2005, end: 2011

REACTIONS (5)
  - Road traffic accident [None]
  - Loss of consciousness [None]
  - Decreased appetite [None]
  - Hypophagia [None]
  - Weight decreased [None]
